FAERS Safety Report 10154117 (Version 1)
Quarter: 2014Q2

REPORT INFORMATION
  Report Type: Spontaneous
  Country: US (occurrence: None)
  Receive Date: 20140505
  Receipt Date: 20140505
  Transmission Date: 20141212
  Serious: Yes (Hospitalization)
  Sender: FDA-Public Use
  Company Number: None

PATIENT
  Age: 66 Year
  Sex: Female

DRUGS (10)
  1. HYDROMORPHONE [Suspect]
     Indication: PAIN
     Route: 048
     Dates: start: 20120202
  2. POLYETHYLENE GLYCOL [Concomitant]
  3. SIMVASTATIN [Concomitant]
  4. SONNA [Concomitant]
  5. RANITIDINE [Concomitant]
  6. ALPRAZOLAM [Concomitant]
  7. LEVOTHYROXINE [Concomitant]
  8. FLUOXETINE [Concomitant]
  9. DOCUSATE [Concomitant]
  10. ACETAMINOPHEN [Concomitant]

REACTIONS (1)
  - Depressed level of consciousness [None]
